FAERS Safety Report 7989420-6 (Version None)
Quarter: 2011Q4

REPORT INFORMATION
  Report Type: 
  Country: None (occurrence: None)
  Receive Date: 20111007
  Receipt Date: 20110808
  Transmission Date: 20120403
  Serious: No
  Sender: FDA-Public Use
  Company Number: 2011HGS-002467

PATIENT
  Age: 48 Year
  Sex: Female
  Weight: 106.5953 kg

DRUGS (12)
  1. MOFETIL) (MYCOPHENOLATE MOFETIL) [Concomitant]
  2. PREDNISONE [Concomitant]
  3. FLEXERIL ( CYCLOBENZAPRINE HYDROCHLORIDE) (CYCLOBENZAPRINE HYDROCHLORI [Concomitant]
  4. TRAZODONE ( TRAZODONE) (TRAZODONE) [Concomitant]
  5. BUMEX ( BUMETANIDE) (BUMETANIDE) [Concomitant]
  6. PLAQUENIL (HYDROXYCHLOROQUINE SULFATE) (HYDROXYCHLOROQUINE SULFATE) [Concomitant]
  7. CELLCEPT [Concomitant]
  8. ACIPHEX (RABEPRAZOLE SODIUM) (RABEPRAZOLE SODIUM) [Concomitant]
  9. ZANTAC [Concomitant]
  10. BENLYSTA [Suspect]
     Indication: SYSTEMIC LUPUS ERYTHEMATOSUS
     Dosage: 1 IN 2 8D, INTRAVENOUS DRIP
     Route: 041
     Dates: start: 20110726
  11. NEURONTIN [Concomitant]
  12. INSULIN, REGULAR (INSULIN) (INSULIN) [Concomitant]

REACTIONS (1)
  - PYREXIA [None]
